FAERS Safety Report 7300846-6 (Version None)
Quarter: 2011Q1

REPORT INFORMATION
  Report Type: 
  Country: None (occurrence: None)
  Receive Date: 20110103
  Receipt Date: 20100310
  Transmission Date: 20110831
  Serious: Yes (Hospitalization)
  Sender: FDA-Public Use
  Company Number: US-004167

PATIENT
  Age: 34 Year
  Sex: Male

DRUGS (3)
  1. SYMBICORT [Concomitant]
  2. MULTIHANCE [Suspect]
     Indication: MULTIPLE SCLEROSIS
     Dosage: 20ML ONCE INTRAVENOUS
     Route: 042
     Dates: start: 20100226, end: 20100226
  3. MULTIHANCE [Suspect]
     Indication: NUCLEAR MAGNETIC RESONANCE IMAGING BRAIN
     Dosage: 20ML ONCE INTRAVENOUS
     Route: 042
     Dates: start: 20100226, end: 20100226

REACTIONS (1)
  - ANAPHYLACTIC REACTION [None]
